FAERS Safety Report 8419850 (Version 5)
Quarter: 2013Q1

REPORT INFORMATION
  Report Type: Spontaneous
  Country: US (occurrence: US)
  Receive Date: 20120222
  Receipt Date: 20130213
  Transmission Date: 20140127
  Serious: No
  Sender: FDA-Public Use
  Company Number: US-PFIZER INC-2012042317

PATIENT
  Age: 38 Year
  Sex: Female
  Weight: 49 kg

DRUGS (6)
  1. LYRICA [Suspect]
     Indication: PAIN
     Dosage: 150 MG, 2X/DAY
     Route: 048
     Dates: start: 201112
  2. LYRICA [Suspect]
     Dosage: 75 MG, 4X/DAY
  3. AMBIEN [Concomitant]
     Dosage: UNK
  4. ADDERALL [Concomitant]
     Dosage: UNK
  5. SPRINTEC [Concomitant]
     Dosage: UNK
  6. IRON SLOW FE [Concomitant]
     Dosage: UNK

REACTIONS (7)
  - Pain [Unknown]
  - Affect lability [Not Recovered/Not Resolved]
  - Memory impairment [Not Recovered/Not Resolved]
  - Fatigue [Not Recovered/Not Resolved]
  - Weight increased [Not Recovered/Not Resolved]
  - Agitation [Not Recovered/Not Resolved]
  - Irritability [Not Recovered/Not Resolved]
